FAERS Safety Report 9726614 (Version 1)
Quarter: 2013Q4

REPORT INFORMATION
  Report Type: Spontaneous
  Country: ES (occurrence: ES)
  Receive Date: 20131203
  Receipt Date: 20131203
  Transmission Date: 20140711
  Serious: Yes (Hospitalization)
  Sender: FDA-Public Use
  Company Number: ES-VIIV HEALTHCARE LIMITED-B0949663A

PATIENT
  Sex: Female

DRUGS (1)
  1. KIVEXA [Suspect]
     Indication: PRODUCT USED FOR UNKNOWN INDICATION
     Route: 048
     Dates: start: 20130603, end: 201306

REACTIONS (2)
  - Hypersensitivity [Recovered/Resolved]
  - Drug administration monitoring procedure incorrectly performed [Recovered/Resolved]
